FAERS Safety Report 6769426-5 (Version None)
Quarter: 2010Q2

REPORT INFORMATION
  Report Type: 
  Country: None (occurrence: None)
  Receive Date: 20100608
  Receipt Date: 20100601
  Transmission Date: 20101027
  Serious: Yes (Hospitalization)
  Sender: FDA-Public Use
  Company Number: 2010SP006976

PATIENT
  Age: 55 Year
  Sex: Female
  Weight: 61 kg

DRUGS (11)
  1. PEGINTERFERON ALFA-2B [Suspect]
     Indication: HEPATITIS C
     Dosage: 0.5 MCG/KG; QW; SC
     Route: 058
     Dates: start: 20090707, end: 20100202
  2. LOXONIN [Concomitant]
  3. KETOPROFEN [Concomitant]
  4. LOXONIN [Concomitant]
  5. GASTER D [Concomitant]
  6. CYANOCOBALAMIN [Concomitant]
  7. OMEPRAZOLE [Concomitant]
  8. ADETPHOS [Concomitant]
  9. DASEN [Concomitant]
  10. MUCODYNE [Concomitant]
  11. PREDONINE [Concomitant]

REACTIONS (5)
  - AUTOPHONY [None]
  - FEELING ABNORMAL [None]
  - MENIERE'S DISEASE [None]
  - NAUSEA [None]
  - VOMITING [None]
